FAERS Safety Report 4951518-4 (Version None)
Quarter: 2006Q1

REPORT INFORMATION
  Report Type: 
  Country: None (occurrence: None)
  Receive Date: 20060317
  Receipt Date: 20060228
  Transmission Date: 20060701
  Serious: Yes (Hospitalization)
  Sender: FDA-Public Use
  Company Number: 6021096

PATIENT
  Age: 53 Year
  Sex: Male

DRUGS (7)
  1. NOTEN (STENOLOL) [Suspect]
     Indication: DRUG USE FOR UNKNOWN INDICATION
  2. PLAQUENIL (200 MG, TABLET) [Suspect]
     Indication: DRUG USE FOR UNKNOWN INDICATION
     Dosage: 200,0000 MG, ORAL (200 MG, 1 IN 1 D)
     Route: 048
  3. ZANTAC [Suspect]
     Indication: GASTRIC ULCER
  4. CODEINE [Suspect]
     Indication: PAIN
  5. LIPITOR [Suspect]
     Indication: METABOLIC DISORDER
  6. NORVASC [Suspect]
     Indication: ESSENTIAL HYPERTENSION
  7. SENEMET (LEVODOPA, CARBIDOPA) [Suspect]
     Indication: PARKINSON'S DISEASE

REACTIONS (3)
  - APHTHOUS STOMATITIS [None]
  - NIGHT BLINDNESS [None]
  - PHOTOPHOBIA [None]
